FAERS Safety Report 9126277 (Version 2)
Quarter: 2013Q1

REPORT INFORMATION
  Report Type: Spontaneous
  Country: JP (occurrence: JP)
  Receive Date: 20130117
  Receipt Date: 20130322
  Transmission Date: 20140127
  Serious: Yes (Death)
  Sender: FDA-Public Use
  Company Number: JP-ROCHE-1178915

PATIENT
  Age: 79 Year
  Sex: Female

DRUGS (11)
  1. GRTPA [Suspect]
     Indication: CEREBRAL INFARCTION
     Dosage: 32.5 ML/DAY
     Route: 042
     Dates: start: 20100211, end: 20100211
  2. OMEPRAL [Concomitant]
     Route: 042
     Dates: start: 20100211, end: 20100213
  3. DIGOSIN [Concomitant]
     Route: 042
     Dates: start: 20100211, end: 20100211
  4. WARFARIN POTASSIUM [Concomitant]
     Indication: ATRIAL FIBRILLATION
     Route: 048
     Dates: end: 20100211
  5. CRESTOR [Concomitant]
     Route: 048
     Dates: end: 20100211
  6. LASIX [Concomitant]
     Route: 048
     Dates: end: 20100211
  7. LANIRAPID [Concomitant]
     Route: 048
     Dates: end: 20100211
  8. LUVOX [Concomitant]
     Route: 048
     Dates: end: 20100211
  9. NICARPINE [Concomitant]
     Dosage: DAILY DOSE: 2 ML/H
     Route: 042
     Dates: start: 20100211, end: 20100213
  10. EDARAVONE [Concomitant]
     Route: 041
     Dates: start: 20100211, end: 20100213
  11. GLYCEOL [Concomitant]
     Indication: BRAIN OEDEMA
     Dosage: 200*3 (ML)/DAY
     Route: 065
     Dates: start: 20100211, end: 20100213

REACTIONS (1)
  - Carotid artery occlusion [Fatal]
